FAERS Safety Report 14773763 (Version 1)
Quarter: 2018Q2

REPORT INFORMATION
  Report Type: Report from Study
  Country: US (occurrence: US)
  Receive Date: 20180418
  Receipt Date: 20180418
  Transmission Date: 20180711
  Serious: Yes (Hospitalization)
  Sender: FDA-Public Use
  Company Number: US-ROCHE-1993902

PATIENT
  Sex: Female
  Weight: 49.2 kg

DRUGS (7)
  1. ATEZOLIZUMAB. [Suspect]
     Active Substance: ATEZOLIZUMAB
     Route: 042
     Dates: start: 20170619
  2. ATEZOLIZUMAB. [Suspect]
     Active Substance: ATEZOLIZUMAB
     Route: 042
     Dates: start: 20170912
  3. ATEZOLIZUMAB. [Suspect]
     Active Substance: ATEZOLIZUMAB
     Indication: ALVEOLAR SOFT PART SARCOMA
     Dosage: TAC 1: OVER 60 MINUTES ON DAY 1 FOR 21 DAY CYCLE.
     Route: 042
     Dates: start: 20170508
  4. ATEZOLIZUMAB. [Suspect]
     Active Substance: ATEZOLIZUMAB
     Dosage: TAC 1: OVER 60 MINUTES ON DAY 1 FOR 21 DAY CYCLE.
     Route: 042
     Dates: start: 20170731
  5. ATEZOLIZUMAB. [Suspect]
     Active Substance: ATEZOLIZUMAB
     Route: 042
     Dates: start: 20170710
  6. ATEZOLIZUMAB. [Suspect]
     Active Substance: ATEZOLIZUMAB
     Dosage: TAC 1: OVER 60 MINUTES ON DAY 1 FOR 21 DAY CYCLE.
     Route: 042
     Dates: start: 20170530
  7. ATEZOLIZUMAB. [Suspect]
     Active Substance: ATEZOLIZUMAB
     Route: 042
     Dates: start: 20170822

REACTIONS (2)
  - Alanine aminotransferase increased [Unknown]
  - Pulmonary haemorrhage [Recovering/Resolving]
